FAERS Safety Report 9780752 (Version 1)
Quarter: 2013Q4

REPORT INFORMATION
  Report Type: Spontaneous
  Country: US (occurrence: US)
  Receive Date: 20131224
  Receipt Date: 20131224
  Transmission Date: 20140711
  Serious: Yes (Other)
  Sender: FDA-Public Use
  Company Number: US-ASTRAZENECA-2013SE92117

PATIENT
  Age: 848 Month
  Sex: Male
  Weight: 49.9 kg

DRUGS (2)
  1. SYMBICORT [Suspect]
     Indication: CHRONIC OBSTRUCTIVE PULMONARY DISEASE
     Dosage: 320 MCG, BID
     Route: 055
     Dates: start: 2010
  2. VENTOLIN [Concomitant]
     Indication: CHRONIC OBSTRUCTIVE PULMONARY DISEASE
     Dosage: PRN

REACTIONS (3)
  - Myocardial infarction [Recovered/Resolved]
  - Dyspnoea [Not Recovered/Not Resolved]
  - Intentional drug misuse [Not Recovered/Not Resolved]
